FAERS Safety Report 7399270-X (Version None)
Quarter: 2011Q1

REPORT INFORMATION
  Report Type: 
  Country: None (occurrence: None)
  Receive Date: 20110328
  Receipt Date: 20110315
  Transmission Date: 20110831
  Serious: Yes (Other)
  Sender: FDA-Public Use
  Company Number: DSJ-2011-05468

PATIENT
  Age: 50 Year
  Sex: Female

DRUGS (2)
  1. BENICAR [Suspect]
     Indication: HYPERTENSION
     Dosage: 40 MG (40 MG, 1 IN 1 D),80 MG (40MG 2 IN 1 D) PER ORAL
     Route: 048
     Dates: start: 20090101
  2. SIMVASTATIN [Concomitant]

REACTIONS (7)
  - HEADACHE [None]
  - OVERDOSE [None]
  - DRUG INEFFECTIVE [None]
  - DYSPNOEA [None]
  - CATHETER PLACEMENT [None]
  - HYPERCHOLESTEROLAEMIA [None]
  - SENSATION OF HEAVINESS [None]
